FAERS Safety Report 4418591-3 (Version None)
Quarter: 2004Q3

REPORT INFORMATION
  Report Type: 
  Country: None (occurrence: None)
  Receive Date: 20040805
  Receipt Date: 20040729
  Transmission Date: 20050211
  Serious: No
  Sender: FDA-Public Use
  Company Number: 2004UW16056

PATIENT
  Age: 60 Year
  Sex: Female

DRUGS (5)
  1. CRESTOR [Suspect]
     Dosage: 20 MG PO
     Route: 048
  2. RHOXAL BISOPROLOL [Suspect]
     Dosage: 5 MG PO
     Route: 048
  3. ALTACE [Concomitant]
  4. ASPIRIN [Concomitant]
  5. ZOCOR [Concomitant]

REACTIONS (1)
  - PERIORBITAL OEDEMA [None]
